FAERS Safety Report 25550172 (Version 1)
Quarter: 2025Q3

REPORT INFORMATION
  Report Type: Spontaneous
  Country: EU (occurrence: EU)
  Receive Date: 20250714
  Receipt Date: 20250714
  Transmission Date: 20251021
  Serious: Yes (Other)
  Sender: MYLAN
  Company Number: EU-AUROBINDO-AUR-APL-2019-054564

PATIENT
  Age: 48 Year
  Sex: Male

DRUGS (2)
  1. IMATINIB [Suspect]
     Active Substance: IMATINIB
     Indication: Chronic myeloid leukaemia
     Dosage: 400 MILLIGRAM, QD (DAILY)
  2. NILOTINIB [Suspect]
     Active Substance: NILOTINIB
     Indication: Chronic myeloid leukaemia
     Dosage: 800 MILLIGRAM, QD (ONCE A DAY)

REACTIONS (2)
  - Acquired gene mutation [Unknown]
  - Drug resistance [Unknown]
